FAERS Safety Report 11008798 (Version 2)
Quarter: 2015Q3

REPORT INFORMATION
  Report Type: Spontaneous
  Country: US (occurrence: US)
  Receive Date: 20150410
  Receipt Date: 20150721
  Transmission Date: 20151125
  Serious: Yes (Hospitalization)
  Sender: FDA-Public Use
  Company Number: US-JNJFOC-20150403439

PATIENT
  Age: 71 Year
  Sex: Male

DRUGS (18)
  1. PROTONIX [Concomitant]
     Active Substance: PANTOPRAZOLE SODIUM
     Route: 065
  2. FLOMAX [Concomitant]
     Active Substance: TAMSULOSIN HYDROCHLORIDE
     Route: 065
  3. ALDACTONE [Concomitant]
     Active Substance: SPIRONOLACTONE
     Route: 065
  4. FINASTERIDE. [Concomitant]
     Active Substance: FINASTERIDE
     Route: 065
     Dates: start: 2011, end: 20140926
  5. OPSUMIT [Concomitant]
     Active Substance: MACITENTAN
     Route: 065
  6. XARELTO [Suspect]
     Active Substance: RIVAROXABAN
     Indication: THROMBOSIS PROPHYLAXIS
     Route: 048
     Dates: start: 20140324, end: 20140406
  7. RESTORIL [Concomitant]
     Active Substance: TEMAZEPAM
     Route: 065
  8. XARELTO [Suspect]
     Active Substance: RIVAROXABAN
     Indication: CEREBROVASCULAR ACCIDENT PROPHYLAXIS
     Route: 048
     Dates: start: 20140324, end: 20140406
  9. ASPIRIN. [Suspect]
     Active Substance: ASPIRIN
     Indication: CEREBROVASCULAR ACCIDENT PROPHYLAXIS
     Route: 065
     Dates: start: 2005
  10. LEVEMIR [Concomitant]
     Active Substance: INSULIN DETEMIR
     Route: 065
  11. CRESTOR [Concomitant]
     Active Substance: ROSUVASTATIN CALCIUM
     Route: 065
  12. ZOLOFT [Concomitant]
     Active Substance: SERTRALINE HYDROCHLORIDE
     Route: 065
     Dates: start: 2005
  13. TRICOR [Concomitant]
     Active Substance: FENOFIBRATE
     Route: 065
     Dates: start: 20110411, end: 20140707
  14. XARELTO [Suspect]
     Active Substance: RIVAROXABAN
     Indication: ATRIAL FIBRILLATION
     Route: 048
     Dates: start: 20140324, end: 20140406
  15. COUMADIN [Suspect]
     Active Substance: WARFARIN SODIUM
     Indication: ANTICOAGULANT THERAPY
     Route: 065
     Dates: start: 2001, end: 20140313
  16. METOPROLOL [Concomitant]
     Active Substance: METOPROLOL
     Route: 065
  17. TORSEMIDE. [Concomitant]
     Active Substance: TORSEMIDE
     Route: 065
  18. CENTRUM SILVER [Concomitant]
     Active Substance: VITAMINS
     Route: 065

REACTIONS (1)
  - Haematoma [Unknown]

NARRATIVE: CASE EVENT DATE: 20140406
